FAERS Safety Report 4695797-X (Version None)
Quarter: 2005Q2

REPORT INFORMATION
  Report Type: 
  Country: None (occurrence: None)
  Receive Date: 20050620
  Receipt Date: 20050620
  Transmission Date: 20051028
  Serious: Yes (Disabling, Other)
  Sender: FDA-Public Use
  Company Number: None

PATIENT
  Age: 39 Year
  Sex: Female
  Weight: 90.7194 kg

DRUGS (1)
  1. RISPERDAL [Suspect]
     Dosage: 3 MG CUT 1/2, 1.5 MG

REACTIONS (2)
  - TREATMENT NONCOMPLIANCE [None]
  - TREMOR [None]
